FAERS Safety Report 21080031 (Version 1)
Quarter: 2022Q3

REPORT INFORMATION
  Report Type: Spontaneous
  Country: ES (occurrence: ES)
  Receive Date: 20220714
  Receipt Date: 20220714
  Transmission Date: 20221027
  Serious: Yes (Hospitalization, Other)
  Sender: FDA-Public Use
  Company Number: ES-AEMPS-1214952

PATIENT
  Age: 7 Year
  Sex: Male

DRUGS (6)
  1. LEVETIRACETAM [Suspect]
     Active Substance: LEVETIRACETAM
     Indication: Epilepsy
     Dosage: 200 MILLIGRAM, TWO TIMES A DAY
     Route: 042
     Dates: start: 202111, end: 20220519
  2. BACLOFEN [Suspect]
     Active Substance: BACLOFEN
     Indication: Muscle spasticity
     Dosage: 30 MILLIGRAM, ONCE A DAY
     Route: 048
     Dates: start: 2016
  3. BOTULINUM TOXIN TYPE A [Concomitant]
     Active Substance: BOTULINUM TOXIN TYPE A
     Indication: Muscle spasticity
     Dosage: 1 DOSAGE FORM, AS NECESSARY
     Route: 030
     Dates: start: 20220304, end: 20220304
  4. COLISTIMETHATE SODIUM [Concomitant]
     Active Substance: COLISTIMETHATE SODIUM
     Indication: Infective exacerbation of bronchiectasis
     Dosage: 1 DOSAGE FORM, ONCE A DAY
     Dates: start: 202111
  5. Glutaferro [Concomitant]
     Indication: Anaemia
     Dosage: 2 MILLILITER, ONCE A DAY
     Route: 048
     Dates: start: 20200814
  6. IPRATROPIUM BROMIDE [Concomitant]
     Active Substance: IPRATROPIUM BROMIDE
     Indication: Bronchospasm
     Dosage: 250 MILLIGRAM, TWO TIMES A DAY
     Dates: start: 202111, end: 20220513

REACTIONS (1)
  - Neuroleptic malignant syndrome [Recovered/Resolved]

NARRATIVE: CASE EVENT DATE: 20220511
